FAERS Safety Report 24437162 (Version 9)
Quarter: 2025Q1

REPORT INFORMATION
  Report Type: Spontaneous
  Country: DE (occurrence: DE)
  Receive Date: 20241015
  Receipt Date: 20250220
  Transmission Date: 20250408
  Serious: Yes (Death, Other)
  Sender: PFIZER
  Company Number: DE-ROCHE-10000070326

PATIENT
  Age: 16 Year
  Sex: Male
  Weight: 62.7 kg

DRUGS (61)
  1. HYDROCORTISONE SODIUM SUCCINATE [Suspect]
     Active Substance: HYDROCORTISONE SODIUM SUCCINATE
     Indication: Non-Hodgkin^s lymphoma
     Route: 037
     Dates: start: 20240726
  2. METHOTREXATE SODIUM [Suspect]
     Active Substance: METHOTREXATE SODIUM
     Indication: Non-Hodgkin^s lymphoma
     Route: 037
     Dates: start: 20240726
  3. ACTEMRA [Suspect]
     Active Substance: TOCILIZUMAB
     Indication: Non-Hodgkin^s lymphoma
     Dosage: 460 MG, 1X/DAY (INFUSION)
     Route: 042
     Dates: start: 20240807
  4. CYTARABINE [Suspect]
     Active Substance: CYTARABINE
     Indication: Non-Hodgkin^s lymphoma
     Dosage: 30 MG, 1X/DAY
     Route: 037
     Dates: start: 20240726
  5. GLOFITAMAB [Suspect]
     Active Substance: GLOFITAMAB
     Indication: Non-Hodgkin^s lymphoma
     Route: 042
     Dates: start: 20240807
  6. GRANULOCYTE COLONY-STIMULATING FACTOR NOS [Suspect]
     Active Substance: GRANULOCYTE COLONY-STIMULATING FACTOR NOS
     Indication: Non-Hodgkin^s lymphoma
     Route: 058
     Dates: start: 20240805
  7. GRANULOCYTE COLONY-STIMULATING FACTOR NOS [Suspect]
     Active Substance: GRANULOCYTE COLONY-STIMULATING FACTOR NOS
     Route: 042
     Dates: start: 20240814
  8. MESNA [Suspect]
     Active Substance: MESNA
     Indication: Non-Hodgkin^s lymphoma
     Route: 042
     Dates: start: 20240802
  9. ACYCLOVIR [Concomitant]
     Active Substance: ACYCLOVIR
     Indication: Encephalopathy
     Dosage: 500 MG, 1X/DAY
     Route: 042
     Dates: start: 20240805, end: 20240806
  10. CARBOPLATIN [Concomitant]
     Active Substance: CARBOPLATIN
     Indication: Non-Hodgkin^s lymphoma
     Route: 042
     Dates: start: 20240802
  11. CLEMASTINE [Concomitant]
     Active Substance: CLEMASTINE
     Dosage: 1.4 MG, 1X/DAY
     Route: 042
     Dates: start: 20240731, end: 20240814
  12. CLEMASTINE [Concomitant]
     Active Substance: CLEMASTINE
     Dosage: 1.6 MG, 1X/DAY
     Route: 042
     Dates: start: 20240828, end: 20240902
  13. CAFFEINE [Concomitant]
     Active Substance: CAFFEINE
     Indication: Headache
     Dosage: 200 MG, 1X/DAY
     Route: 048
     Dates: start: 20240727, end: 20240905
  14. CHOLECALCIFEROL [Concomitant]
     Active Substance: CHOLECALCIFEROL
     Dosage: 200 IU, WEEKLY
     Route: 048
     Dates: start: 20240724, end: 20240731
  15. SULFAMETHOXAZOLE\TRIMETHOPRIM [Concomitant]
     Active Substance: SULFAMETHOXAZOLE\TRIMETHOPRIM
     Dosage: 80 MG, 1X/DAY
     Route: 048
     Dates: end: 20240723
  16. SULFAMETHOXAZOLE\TRIMETHOPRIM [Concomitant]
     Active Substance: SULFAMETHOXAZOLE\TRIMETHOPRIM
     Dosage: 160 MG, 1X/DAY
     Route: 048
     Dates: start: 20240723, end: 20240723
  17. SULFAMETHOXAZOLE\TRIMETHOPRIM [Concomitant]
     Active Substance: SULFAMETHOXAZOLE\TRIMETHOPRIM
     Dosage: 320 MG, 2X/WEEK
     Route: 048
     Dates: start: 20240726, end: 20240913
  18. DEXAMETHASONE [Concomitant]
     Active Substance: DEXAMETHASONE
     Indication: Encephalopathy
     Dosage: 8 MG, 2X/DAY
     Dates: start: 20240802, end: 20240804
  19. DEXAMETHASONE [Concomitant]
     Active Substance: DEXAMETHASONE
     Dosage: 5 MG, DAILY
     Route: 042
     Dates: start: 20240805, end: 20240805
  20. DEXAMETHASONE [Concomitant]
     Active Substance: DEXAMETHASONE
     Dosage: 5 MG, 2X/DAY
     Route: 042
     Dates: start: 20240806, end: 20240806
  21. DIMENHYDRINATE [Concomitant]
     Active Substance: DIMENHYDRINATE
     Dates: start: 20240804, end: 20240804
  22. ENOXAPARIN [Concomitant]
     Active Substance: ENOXAPARIN
     Dosage: UNK UNK, 1X/DAY
     Dates: start: 20240730, end: 20240803
  23. ENOXAPARIN [Concomitant]
     Active Substance: ENOXAPARIN
     Dosage: UNK UNK, 1X/DAY
     Dates: start: 20240806, end: 20240808
  24. HUMAN RED BLOOD CELL [Concomitant]
     Active Substance: HUMAN RED BLOOD CELL
     Indication: Anaemia
     Route: 042
     Dates: start: 20240805
  25. ETOPOSIDE [Concomitant]
     Active Substance: ETOPOSIDE
     Indication: Non-Hodgkin^s lymphoma
     Dosage: 176 MG, 1X/DAY
     Route: 042
     Dates: start: 20240802
  26. FUROSEMIDE [Concomitant]
     Active Substance: FUROSEMIDE
     Indication: Weight increased
     Route: 042
     Dates: start: 20240803, end: 20240803
  27. GENTAMICIN [Concomitant]
     Active Substance: GENTAMICIN
     Indication: Encephalopathy
     Dosage: 250 MG, 1X/DAY
     Route: 042
     Dates: start: 20240805, end: 20240805
  28. IFOSFAMIDE [Concomitant]
     Active Substance: IFOSFAMIDE
     Indication: Non-Hodgkin^s lymphoma
     Route: 042
     Dates: start: 20240802
  29. LEVETIRACETAM [Concomitant]
     Active Substance: LEVETIRACETAM
     Indication: Encephalopathy
     Dosage: 500 MG, 2X/DAY
     Route: 042
     Dates: start: 20240804, end: 20240812
  30. MELATONIN [Concomitant]
     Active Substance: MELATONIN
     Dosage: 2 MG, 1X/DAY
     Dates: start: 20240727, end: 20240801
  31. MELATONIN [Concomitant]
     Active Substance: MELATONIN
     Dosage: 5 MG, 1X/DAY
     Dates: start: 20240802, end: 20240803
  32. MELATONIN [Concomitant]
     Active Substance: MELATONIN
     Dosage: 5 MG, 1X/DAY
     Dates: start: 20240806, end: 20240913
  33. MEROPENEM [Concomitant]
     Active Substance: MEROPENEM
     Indication: Encephalopathy
     Dosage: 2 G, 1X/DAY
     Dates: start: 20240805, end: 20240806
  34. MEROPENEM [Concomitant]
     Active Substance: MEROPENEM
     Dosage: 2 G, 1X/DAY
     Dates: start: 20240808, end: 20240808
  35. MEROPENEM [Concomitant]
     Active Substance: MEROPENEM
     Dosage: 2 G, 3X/DAY
     Dates: start: 20240809, end: 20240811
  36. METAMIZOLE MAGNESIUM [Concomitant]
     Active Substance: METAMIZOLE MAGNESIUM
     Dates: start: 20240727, end: 20240807
  37. METHYLPREDNISOLONE [Concomitant]
     Active Substance: METHYLPREDNISOLONE
     Dosage: 120 MG, 1X/DAY
     Dates: start: 20240828, end: 20240828
  38. METHYLPREDNISOLONE [Concomitant]
     Active Substance: METHYLPREDNISOLONE
     Dates: start: 20240731, end: 20240814
  39. METHYLENE BLUE [Concomitant]
     Active Substance: METHYLENE BLUE
     Indication: Encephalopathy
     Dosage: 50 MG, 1X/DAY
     Dates: start: 20240804, end: 20240806
  40. MICAFUNGIN [Concomitant]
     Active Substance: MICAFUNGIN SODIUM
     Dosage: 200 MG, 2X/WEEK
     Dates: start: 20240809, end: 20240830
  41. OBINUTUZUMAB [Concomitant]
     Active Substance: OBINUTUZUMAB
     Indication: Non-Hodgkin^s lymphoma
     Route: 042
     Dates: start: 20240731
  42. ONDANSETRON [Concomitant]
     Active Substance: ONDANSETRON
     Dosage: 8 MG, 2X/DAY
     Dates: start: 20240802, end: 20240802
  43. ONDANSETRON [Concomitant]
     Active Substance: ONDANSETRON
     Dosage: 8 MG, 3X/DAY
     Dates: start: 20240803, end: 20240803
  44. ONDANSETRON [Concomitant]
     Active Substance: ONDANSETRON
     Dosage: 8 MG, 4X/DAY
     Dates: start: 20240804, end: 20240804
  45. ONDANSETRON [Concomitant]
     Active Substance: ONDANSETRON
     Dosage: 8 MG, 2X/DAY
     Dates: start: 20240805, end: 20240805
  46. ONDANSETRON [Concomitant]
     Active Substance: ONDANSETRON
     Dosage: 8 MG, 4X/DAY
     Dates: start: 20240806, end: 20240811
  47. PANTOPRAZOLE SODIUM [Concomitant]
     Active Substance: PANTOPRAZOLE SODIUM
     Dosage: 40 MG, 1X/DAY
     Route: 048
     Dates: start: 20240728, end: 20240907
  48. ACETAMINOPHEN [Concomitant]
     Active Substance: ACETAMINOPHEN
     Route: 042
     Dates: start: 20240727
  49. POSACONAZOLE [Concomitant]
     Active Substance: POSACONAZOLE
     Dosage: 300 MG, 1X/DAY
     Route: 048
     Dates: end: 20240731
  50. RASBURICASE [Concomitant]
     Active Substance: RASBURICASE
     Indication: Tumour lysis syndrome
     Route: 042
     Dates: start: 20240804, end: 20240804
  51. PLATELETS [Concomitant]
     Active Substance: HUMAN PLATELET, ALLOGENIC
     Indication: Platelet count decreased
     Route: 042
     Dates: start: 20240804
  52. TRANEXAMIC ACID [Concomitant]
     Active Substance: TRANEXAMIC ACID
     Indication: Epistaxis
     Dates: start: 20240802
  53. TRANEXAMIC ACID [Concomitant]
     Active Substance: TRANEXAMIC ACID
     Dates: start: 20240812
  54. VANCOMYCIN [Concomitant]
     Active Substance: VANCOMYCIN
     Indication: Encephalopathy
     Dosage: 800 MG, 3X/DAY
     Route: 042
     Dates: start: 20240805, end: 20240805
  55. VANCOMYCIN [Concomitant]
     Active Substance: VANCOMYCIN
     Dosage: 750 MG, 1X/DAY
     Route: 042
     Dates: start: 20240806, end: 20240806
  56. VANCOMYCIN [Concomitant]
     Active Substance: VANCOMYCIN
     Dosage: 280 MG, 2X/DAY
     Route: 048
     Dates: start: 20240808, end: 20240808
  57. VANCOMYCIN [Concomitant]
     Active Substance: VANCOMYCIN
     Dosage: 280 MG, 1X/DAY
     Route: 042
     Dates: start: 20240809, end: 20240809
  58. NALOXONE HYDROCHLORIDE [Concomitant]
     Active Substance: NALOXONE HYDROCHLORIDE
     Dosage: 0.34 MG, 1X/DAY
     Route: 042
     Dates: start: 20240808, end: 20240820
  59. FILGRASTIM [Concomitant]
     Active Substance: FILGRASTIM
     Dosage: 300 UG, 1X/DAY
     Route: 058
     Dates: start: 20240808, end: 20240812
  60. FILGRASTIM [Concomitant]
     Active Substance: FILGRASTIM
     Dosage: 300 UG, 1X/DAY
     Route: 058
     Dates: start: 20240806, end: 20240806
  61. TRAMADOL [Concomitant]
     Active Substance: TRAMADOL
     Route: 042
     Dates: start: 20240808, end: 20240808

REACTIONS (5)
  - Death [Fatal]
  - Cytokine release syndrome [Recovered/Resolved]
  - Headache [Recovered/Resolved]
  - Off label use [Unknown]
  - Off label use [Unknown]

NARRATIVE: CASE EVENT DATE: 20240726
